FAERS Safety Report 16944685 (Version 3)
Quarter: 2019Q4

REPORT INFORMATION
  Report Type: Spontaneous
  Country: CL (occurrence: CL)
  Receive Date: 20191022
  Receipt Date: 20191206
  Transmission Date: 20200122
  Serious: Yes (Hospitalization, Other)
  Sender: FDA-Public Use
  Company Number: DO-SYNTHON BV-IN51PV19_50322

PATIENT
  Age: 45 Year
  Sex: Male

DRUGS (2)
  1. KETOROLAC [Concomitant]
     Active Substance: KETOROLAC TROMETHAMINE
     Indication: RENAL COLIC
     Dosage: FIVE 10 MG SEPARATED DOSES
  2. TAMSULOSIN [Suspect]
     Active Substance: TAMSULOSIN
     Indication: RENAL COLIC
     Dosage: 0.4 MG ONCE A DAY

REACTIONS (3)
  - Self-medication [Recovered/Resolved]
  - Priapism [Recovered/Resolved]
  - Ischaemia [Recovered/Resolved]
